FAERS Safety Report 9519177 (Version 4)
Quarter: 2013Q4

REPORT INFORMATION
  Report Type: Spontaneous
  Country: BR (occurrence: BR)
  Receive Date: 20130912
  Receipt Date: 20131004
  Transmission Date: 20140711
  Serious: Yes (Death, Other)
  Sender: FDA-Public Use
  Company Number: BR-JNJFOC-20130905103

PATIENT
  Sex: Female

DRUGS (1)
  1. XARELTO [Suspect]
     Indication: ANGIOPATHY
     Route: 048
     Dates: start: 20130612, end: 20130820

REACTIONS (5)
  - Death [Fatal]
  - Skin haemorrhage [Unknown]
  - Anaemia [Unknown]
  - Product quality issue [Unknown]
  - Pleural effusion [Unknown]
